FAERS Safety Report 11600490 (Version 1)
Quarter: 2015Q4

REPORT INFORMATION
  Report Type: Spontaneous
  Country: US (occurrence: US)
  Receive Date: 20151006
  Receipt Date: 20151006
  Transmission Date: 20160304
  Serious: No
  Sender: FDA-Public Use
  Company Number: US-AMGEN-USASP2014093479

PATIENT
  Age: 66 Year
  Sex: Female
  Weight: 54.88 kg

DRUGS (6)
  1. VITAMIN B [Concomitant]
     Active Substance: VITAMIN B
     Dosage: UNK
  2. MULTIVITAMINS [Concomitant]
     Active Substance: VITAMINS
     Dosage: UNK
  3. BOTOX [Concomitant]
     Active Substance: ONABOTULINUMTOXINA
     Dosage: UNK
  4. PROLIA [Suspect]
     Active Substance: DENOSUMAB
     Indication: OSTEOPOROSIS
     Dosage: 60 MG, Q6MO
     Route: 058
     Dates: start: 20131119
  5. PNEUMOCOCCAL VACCINE POLYVALENT NOS [Concomitant]
     Active Substance: PNEUMOCOCCAL VACCINE POLYVALENT
     Dosage: UNK
  6. VITAMIN D                          /00107901/ [Concomitant]
     Active Substance: ERGOCALCIFEROL
     Dosage: UNK (5000)
     Dates: start: 201405

REACTIONS (8)
  - Paraesthesia [Recovered/Resolved]
  - Skin exfoliation [Unknown]
  - Sciatica [Recovered/Resolved]
  - Arthralgia [Recovered/Resolved]
  - Skin disorder [Recovering/Resolving]
  - Alopecia [Recovered/Resolved]
  - Dermatitis [Recovered/Resolved]
  - Weight decreased [Unknown]
